FAERS Safety Report 26208781 (Version 1)
Quarter: 2025Q4

REPORT INFORMATION
  Report Type: Other
  Country: EU (occurrence: EU)
  Receive Date: 20251229
  Receipt Date: 20251229
  Transmission Date: 20260118
  Serious: Yes (Life-Threatening, Hospitalization, Other)
  Sender: VISTAPHARM
  Company Number: EU-Vista Pharmaceuticals Inc.-2191498

PATIENT
  Age: 49 Year
  Sex: Male

DRUGS (3)
  1. SULFAMETHOXAZOLE\TRIMETHOPRIM [Suspect]
     Active Substance: SULFAMETHOXAZOLE\TRIMETHOPRIM
     Indication: Product used for unknown indication
  2. CLINDAMYCIN [Concomitant]
     Active Substance: CLINDAMYCIN
     Route: 061
  3. CIPROFLOXACIN [Concomitant]
     Active Substance: CIPROFLOXACIN
     Route: 061

REACTIONS (2)
  - Respiratory failure [Recovered/Resolved]
  - Pneumonitis [Recovered/Resolved]
